FAERS Safety Report 15073567 (Version 1)
Quarter: 2018Q2

REPORT INFORMATION
  Report Type: Spontaneous
  Country: PR (occurrence: PR)
  Receive Date: 20180606
  Receipt Date: 20180606
  Transmission Date: 20180711
  Serious: No
  Sender: FDA-Public Use
  Company Number: None

PATIENT
  Age: 61 Year
  Sex: Female
  Weight: 33.75 kg

DRUGS (2)
  1. INVANZ [Concomitant]
     Active Substance: ERTAPENEM SODIUM
     Dates: start: 20180606, end: 20180606
  2. VANCOMYCIN [Suspect]
     Active Substance: VANCOMYCIN
     Indication: ULCER
     Route: 041
     Dates: start: 20180606, end: 20180606

REACTIONS (2)
  - Erythema [None]
  - Pruritus [None]

NARRATIVE: CASE EVENT DATE: 20180606
